FAERS Safety Report 6092133-1 (Version None)
Quarter: 2009Q1

REPORT INFORMATION
  Report Type: 
  Country: None (occurrence: None)
  Receive Date: 20090223
  Receipt Date: 20090223
  Transmission Date: 20090719
  Serious: No
  Sender: FDA-Public Use
  Company Number: None

PATIENT
  Age: 38 Year
  Sex: Female
  Weight: 81.1939 kg

DRUGS (2)
  1. BENSONATATE 100 MG PLIVA, INC [Suspect]
     Indication: COUGH
     Dosage: 2 PEARLS 3 TIMES A DAY PO
     Route: 048
     Dates: start: 20090218, end: 20090220
  2. SULFAMETHOXAZOLE- TIMP DS TABITP UNSTATED INERPHARM, INC [Suspect]
     Indication: BRONCHITIS
     Dosage: 1 TABLET TWICE A DAY PO
     Route: 048
     Dates: start: 20090218, end: 20090220

REACTIONS (6)
  - CHILLS [None]
  - COLD SWEAT [None]
  - DIZZINESS [None]
  - HOT FLUSH [None]
  - HYPOREFLEXIA [None]
  - NAUSEA [None]
